FAERS Safety Report 4436651-8 (Version None)
Quarter: 2004Q3

REPORT INFORMATION
  Report Type: 
  Country: None (occurrence: None)
  Receive Date: 20040830
  Receipt Date: 20040726
  Transmission Date: 20050211
  Serious: Yes (Other)
  Sender: FDA-Public Use
  Company Number: US-BRISTOL-MYERS SQUIBB COMPANY-12652418

PATIENT
  Sex: Male

DRUGS (3)
  1. ABILIFY [Suspect]
     Route: 048
     Dates: start: 20040513, end: 20040518
  2. INSULIN [Concomitant]
  3. ZYPREXA [Concomitant]

REACTIONS (1)
  - BLOOD GLUCOSE INCREASED [None]
